FAERS Safety Report 13098405 (Version 1)
Quarter: 2017Q1

REPORT INFORMATION
  Report Type: Spontaneous
  Country: US (occurrence: US)
  Receive Date: 20170109
  Receipt Date: 20170109
  Transmission Date: 20170428
  Serious: Yes (Death)
  Sender: FDA-Public Use
  Company Number: US-BAYER-2017-001624

PATIENT
  Age: 81 Year
  Sex: Female

DRUGS (8)
  1. AMLODIPINE [Suspect]
     Active Substance: AMLODIPINE BESYLATE
  2. CLONAZEPAM. [Suspect]
     Active Substance: CLONAZEPAM
  3. HYDROCHLOROTHIAZIDE. [Suspect]
     Active Substance: HYDROCHLOROTHIAZIDE
  4. ACETYLSALICYLIC ACID (} 100 MG) [Suspect]
     Active Substance: ASPIRIN
     Route: 048
  5. MELOXICAM. [Suspect]
     Active Substance: MELOXICAM
  6. ESTAZOLAM. [Suspect]
     Active Substance: ESTAZOLAM
  7. PAROXETINE. [Suspect]
     Active Substance: PAROXETINE
  8. LISINOPRIL. [Suspect]
     Active Substance: LISINOPRIL

REACTIONS (1)
  - Toxicity to various agents [Fatal]
